FAERS Safety Report 8758605 (Version 2)
Quarter: 2012Q4

REPORT INFORMATION
  Report Type: 
  Country: JP (occurrence: JP)
  Receive Date: 20120829
  Receipt Date: 20120917
  Transmission Date: 20130627
  Serious: Yes (Other)
  Sender: FDA-Public Use
  Company Number: PHHY2012JP074039

PATIENT
  Age: 45 Year
  Sex: Male

DRUGS (2)
  1. TEGRETOL [Suspect]
     Indication: NEURALGIA
     Dosage: 100 mg, TID
     Route: 048
  2. PREDNISOLONE [Interacting]
     Indication: PEMPHIGUS
     Dosage: 50 mg, UNK
     Route: 048
     Dates: start: 20120528

REACTIONS (3)
  - Pemphigus [Not Recovered/Not Resolved]
  - Drug interaction [Unknown]
  - Drug effect decreased [Unknown]
